FAERS Safety Report 4676210-5 (Version None)
Quarter: 2005Q2

REPORT INFORMATION
  Report Type: 
  Country: None (occurrence: None)
  Receive Date: 20050527
  Receipt Date: 20050103
  Transmission Date: 20051028
  Serious: No
  Sender: FDA-Public Use
  Company Number: US-GLAXOSMITHKLINE-A0539064A

PATIENT
  Age: 32 Year
  Sex: Female
  Weight: 111.8 kg

DRUGS (4)
  1. WELLBUTRIN XL [Suspect]
     Indication: DEPRESSION
     Dosage: 300MG PER DAY
     Route: 048
     Dates: start: 20040101, end: 20050119
  2. GLUCOPHAGE [Concomitant]
  3. ORAL CONTRACEPTIVES [Concomitant]
  4. DIFLUCAN [Concomitant]
     Dosage: 150MG AS REQUIRED
     Route: 048

REACTIONS (3)
  - AFFECT LABILITY [None]
  - DRUG INEFFECTIVE [None]
  - SLEEP DISORDER [None]
